FAERS Safety Report 7803333 (Version 2)
Quarter: 2013Q1

REPORT INFORMATION
  Report Type: Spontaneous
  Country: US (occurrence: US)
  Receive Date: 20110208
  Receipt Date: 20130111
  Transmission Date: 20140127
  Serious: Yes (Hospitalization)
  Sender: FDA-Public Use
  Company Number: US-BAYER-2011-011205

PATIENT
  Age: 27 Year
  Sex: Female

DRUGS (4)
  1. OCELLA [Suspect]
     Dosage: UNK
     Dates: start: 200909
  2. YASMIN [Suspect]
     Dosage: UNK
  3. YAZ [Suspect]
     Dosage: UNK
  4. ADVIL [Concomitant]
     Dosage: INTERMITTENT

REACTIONS (3)
  - Deep vein thrombosis [None]
  - Pulmonary embolism [None]
  - Pain [None]
